FAERS Safety Report 9953544 (Version 1)
Quarter: 2014Q1

REPORT INFORMATION
  Report Type: Spontaneous
  Country: US (occurrence: US)
  Receive Date: 20140304
  Receipt Date: 20140304
  Transmission Date: 20141002
  Serious: No
  Sender: FDA-Public Use
  Company Number: US-AMGEN-USASP2013076037

PATIENT
  Age: 46 Year
  Sex: Female
  Weight: 113.38 kg

DRUGS (14)
  1. ENBREL [Suspect]
     Indication: PRODUCT USED FOR UNKNOWN INDICATION
     Dosage: 50 MG/ML, QWK
     Route: 058
  2. METHOTREXATE [Concomitant]
     Dosage: 2.5 MG, UNK
  3. CLARINEX                           /01202601/ [Concomitant]
     Dosage: 5 MG, UNK
  4. PATANASE [Concomitant]
     Dosage: UNK, 0.6%
  5. SINGULAIR [Concomitant]
     Dosage: 10 MG, UNK
  6. VERAMYST [Concomitant]
     Dosage: 27.5 MUG, UNK
  7. GABAPENTIN [Concomitant]
     Dosage: 300 MG, UNK
  8. FOLIC ACID [Concomitant]
     Dosage: UNK
  9. MULTIVITAMINS, PLAIN [Concomitant]
     Dosage: UNK
  10. VITAMIN D3 [Concomitant]
     Dosage: 4000 UNIT, UNK
  11. SKELAXIN                           /00611501/ [Concomitant]
     Dosage: 800 MG, UNK
  12. VICODIN [Concomitant]
     Dosage: UNK, 5-300MG
  13. TRAMADOL HCL [Concomitant]
     Dosage: 50 MG, UNK
  14. PREDNISONE [Concomitant]
     Dosage: 1 MG, UNK

REACTIONS (2)
  - Musculoskeletal pain [Unknown]
  - Nasopharyngitis [Unknown]
